FAERS Safety Report 4901320-4 (Version None)
Quarter: 2006Q1

REPORT INFORMATION
  Report Type: 
  Country: None (occurrence: None)
  Receive Date: 20060206
  Receipt Date: 20060125
  Transmission Date: 20060701
  Serious: No
  Sender: FDA-Public Use
  Company Number: 221492

PATIENT
  Age: 49 Year
  Sex: Male
  Weight: 104.3 kg

DRUGS (4)
  1. XOLAIR [Suspect]
     Dosage: 375 MG, 1/MONTH, INTRAMUSCULAR
     Route: 030
  2. SPIRIVA [Concomitant]
  3. SINUCOL NASAL SPRAY                  (DECONGESTANT NOS) [Concomitant]
  4. DUONEB      (ALBUTEROL, ALBUTEROL SULFATE, IPRATROPIUM BROMIDE) [Concomitant]

REACTIONS (2)
  - INTERTRIGO [None]
  - RASH MACULO-PAPULAR [None]
